FAERS Safety Report 8796672 (Version 1)
Quarter: 2012Q4

REPORT INFORMATION
  Report Type: 
  Country: US (occurrence: US)
  Receive Date: 20120917
  Receipt Date: 20120917
  Transmission Date: 20130627
  Serious: No
  Sender: FDA-Public Use
  Company Number: US-ABBOTT-12P-163-0963096-00

PATIENT
  Age: 13 Year
  Sex: Male
  Weight: 51.3 kg

DRUGS (4)
  1. DEPAKOTE [Suspect]
     Indication: BIPOLAR DISORDER
     Dosage: 500 mg three times a day.
     Dates: start: 20120723, end: 20120727
  2. DEPAKOTE [Suspect]
     Dosage: 750mg three times a day.
     Dates: start: 20120727, end: 20120728
  3. DEPAKOTE [Suspect]
     Dosage: 1000mg three times a day.
     Dates: start: 20120728
  4. COGENTIN [Concomitant]
     Indication: PRODUCT USED FOR UNKNOWN INDICATION

REACTIONS (2)
  - Off label use [Unknown]
  - Drug level increased [Not Recovered/Not Resolved]
